FAERS Safety Report 19306529 (Version 3)
Quarter: 2021Q2

REPORT INFORMATION
  Report Type: Spontaneous
  Country: US (occurrence: US)
  Receive Date: 20210526
  Receipt Date: 20210616
  Transmission Date: 20210717
  Serious: Yes (Hospitalization)
  Sender: FDA-Public Use
  Company Number: US-GW PHARMA-202105USGW02510

PATIENT

DRUGS (23)
  1. EPIDIOLEX [Suspect]
     Active Substance: CANNABIDIOL
     Indication: LENNOX-GASTAUT SYNDROME
     Dosage: 6.54 MG/KG/DAY, 170 MILLIGRAM, BID
     Dates: start: 20210202
  2. CARNITOR [Concomitant]
     Active Substance: LEVOCARNITINE
     Dosage: 990 MILLIGRAM, TID
     Route: 048
     Dates: start: 20210316
  3. TYLENOL [Concomitant]
     Active Substance: ACETAMINOPHEN
     Indication: PYREXIA
  4. VITAMIN D3 [Concomitant]
     Active Substance: CHOLECALCIFEROL
     Dosage: MAY ALSO GIVE 1 TABLET (0.5 MG TOTAL) AS NEEDED (MORE THAN 3 IN 4 HOURS OR LESS); 1000 UNITS
  5. GONIOTAIRE [Concomitant]
     Active Substance: HYPROMELLOSE 2906 (4000 MPA.S)
     Indication: PRODUCT USED FOR UNKNOWN INDICATION
     Dosage: 1 GTT DROPS, QID AS NEEDED
     Route: 047
     Dates: start: 20200824
  6. VIMPAT [Concomitant]
     Active Substance: LACOSAMIDE
     Dosage: 100 MILLIGRAM, BID
     Route: 048
     Dates: start: 202101
  7. CARNITOR [Concomitant]
     Active Substance: LEVOCARNITINE
     Dosage: 660 MILLIGRAM, TID
     Route: 048
     Dates: start: 20210309, end: 20210315
  8. ONFI [Concomitant]
     Active Substance: CLOBAZAM
     Indication: PRODUCT USED FOR UNKNOWN INDICATION
     Dosage: 10 MILLIGRAM, BID
     Route: 048
     Dates: start: 20210215
  9. SENOKOT [Concomitant]
     Active Substance: SENNOSIDES
     Indication: PRODUCT USED FOR UNKNOWN INDICATION
     Dosage: 25.8 MILLIGRAM (3 TABLETS), QD
     Dates: start: 20201023
  10. MODERNA COVID?19 VACCINE [Concomitant]
     Active Substance: CX-024414
     Indication: PROPHYLAXIS
     Dosage: UNK
     Route: 065
     Dates: start: 20210120, end: 20210120
  11. VIMPAT [Concomitant]
     Active Substance: LACOSAMIDE
     Indication: PRODUCT USED FOR UNKNOWN INDICATION
     Dosage: 50 MILLIGRAM, BID
     Route: 048
     Dates: start: 20210114, end: 202101
  12. ATIVAN [Concomitant]
     Active Substance: LORAZEPAM
     Indication: SEIZURE
     Dosage: 1 MILLIGRAM, Q8H, AS NEEDED (NOTES: GIVE FOR CLUSTER SEIZURES (MORE THAN 3 IN 4 HOURS OR LESS) MEDS
     Dates: start: 20210419
  13. TYLENOL [Concomitant]
     Active Substance: ACETAMINOPHEN
     Indication: PAIN
     Dosage: 325 MILLIGRAM, Q6H, AS NEEDED
     Dates: start: 20201023
  14. VITAMIN D3 [Concomitant]
     Active Substance: CHOLECALCIFEROL
     Indication: SEIZURE CLUSTER
     Dosage: 1 DOSAGE FORM, QD
  15. VITAMIN D3 [Concomitant]
     Active Substance: CHOLECALCIFEROL
     Dosage: 1 DOSAGE FORM, BID
  16. CENTRUM JR [MINERALS NOS;VITAMINS NOS] [Concomitant]
     Indication: PRODUCT USED FOR UNKNOWN INDICATION
     Dosage: 1 TABLET, QD (18?400 MG?MCG)
     Dates: start: 20201023
  17. KEPPRA [Concomitant]
     Active Substance: LEVETIRACETAM
     Indication: PRODUCT USED FOR UNKNOWN INDICATION
     Dosage: 750 MILLIGRAM, BID
     Dates: start: 20201023
  18. BISACODYL. [Concomitant]
     Active Substance: BISACODYL
     Indication: PRODUCT USED FOR UNKNOWN INDICATION
     Dosage: 10 MILLIGRAM, QD
     Route: 054
     Dates: start: 20200824
  19. K PHOS ORIGINAL [Concomitant]
     Active Substance: POTASSIUM PHOSPHATE, MONOBASIC
     Indication: PRODUCT USED FOR UNKNOWN INDICATION
     Dosage: 250 MILLIGRAM (0.5 TABLET), QD
     Route: 048
     Dates: start: 20210204
  20. ZONEGRAN [Concomitant]
     Active Substance: ZONISAMIDE
     Indication: PRODUCT USED FOR UNKNOWN INDICATION
     Dosage: 700 MILLIGRAM, QD (4 CAPSULE EVERY MORNING AND 3 CAPSULES EVERY EVENING)
     Route: 048
     Dates: start: 20201202
  21. EPIDIOLEX [Suspect]
     Active Substance: CANNABIDIOL
     Indication: STATUS EPILEPTICUS
  22. CARNITOR [Concomitant]
     Active Substance: LEVOCARNITINE
     Indication: PRODUCT USED FOR UNKNOWN INDICATION
     Dosage: 330 MILLIGRAM, TID
     Route: 048
     Dates: start: 20210302, end: 20210308
  23. ATIVAN [Concomitant]
     Active Substance: LORAZEPAM
     Indication: SEIZURE CLUSTER

REACTIONS (12)
  - Fatigue [Not Recovered/Not Resolved]
  - Vomiting [Not Recovered/Not Resolved]
  - Blood alkaline phosphatase increased [Not Recovered/Not Resolved]
  - Abnormal behaviour [Not Recovered/Not Resolved]
  - Osteoporosis [Not Recovered/Not Resolved]
  - Alanine aminotransferase increased [Not Recovered/Not Resolved]
  - Aspartate aminotransferase increased [Not Recovered/Not Resolved]
  - Amylase increased [Not Recovered/Not Resolved]
  - Hypotension [Not Recovered/Not Resolved]
  - Lipase increased [Not Recovered/Not Resolved]
  - Urinary tract infection [Not Recovered/Not Resolved]
  - Hypovolaemia [Not Recovered/Not Resolved]

NARRATIVE: CASE EVENT DATE: 2021
